FAERS Safety Report 16626673 (Version 4)
Quarter: 2019Q4

REPORT INFORMATION
  Report Type: Spontaneous
  Country: CA (occurrence: CA)
  Receive Date: 20190724
  Receipt Date: 20191106
  Transmission Date: 20200122
  Serious: Yes (Life-Threatening, Other)
  Sender: FDA-Public Use
  Company Number: CA-TEVA-2019-CA-1082342

PATIENT
  Age: 44 Year
  Sex: Female

DRUGS (24)
  1. METRONIDAZOLE. [Suspect]
     Active Substance: METRONIDAZOLE
     Indication: HIDRADENITIS
     Route: 065
  2. MINOCYCLINE [Suspect]
     Active Substance: MINOCYCLINE HYDROCHLORIDE
     Indication: HIDRADENITIS
     Route: 065
  3. ERTAPENEM. [Suspect]
     Active Substance: ERTAPENEM SODIUM
     Indication: HIDRADENITIS
     Route: 042
  4. ROFACT 150MG [Suspect]
     Active Substance: RIFAMPIN
     Indication: HIDRADENITIS
     Route: 065
  5. ARESTIN [Suspect]
     Active Substance: MINOCYCLINE HYDROCHLORIDE
     Indication: HIDRADENITIS
     Route: 065
  6. ZINC. [Suspect]
     Active Substance: ZINC
     Indication: HIDRADENITIS
     Route: 065
  7. ARISTOCORT [Suspect]
     Active Substance: TRIAMCINOLONE DIACETATE
     Indication: HIDRADENITIS
     Route: 065
  8. AMOXICILLIN/CLAVULANATE POTASSIUM [Suspect]
     Active Substance: AMOXICILLIN\CLAVULANATE POTASSIUM
     Indication: HIDRADENITIS
     Route: 065
  9. NORITATE [Suspect]
     Active Substance: METRONIDAZOLE
     Indication: HIDRADENITIS
     Route: 061
  10. NORITATE [Suspect]
     Active Substance: METRONIDAZOLE
     Route: 065
  11. MINOCYCLINE [Suspect]
     Active Substance: MINOCYCLINE HYDROCHLORIDE
     Indication: PRODUCT USED FOR UNKNOWN INDICATION
  12. CLINDAMYCIN PHOSPHATE. [Suspect]
     Active Substance: CLINDAMYCIN PHOSPHATE
     Indication: PRODUCT USED FOR UNKNOWN INDICATION
     Route: 065
  13. CLINDA-T [Suspect]
     Active Substance: CLINDAMYCIN PHOSPHATE
     Indication: HIDRADENITIS
     Route: 061
  14. ARISTOCORT [Suspect]
     Active Substance: TRIAMCINOLONE DIACETATE
     Route: 026
  15. METRONIDAZOLE. [Suspect]
     Active Substance: METRONIDAZOLE
     Route: 065
  16. MOXIFLOXACIN. [Suspect]
     Active Substance: MOXIFLOXACIN
     Indication: HIDRADENITIS
     Route: 065
  17. PREDNISONE. [Suspect]
     Active Substance: PREDNISONE
     Indication: HIDRADENITIS
     Route: 065
  18. CLINDAMYCIN PHOSPHATE. [Suspect]
     Active Substance: CLINDAMYCIN PHOSPHATE
     Indication: HIDRADENITIS
  19. TETRACYCLINE [Suspect]
     Active Substance: TETRACYCLINE
     Indication: HIDRADENITIS
     Route: 065
  20. DOXYCYCLINE. [Suspect]
     Active Substance: DOXYCYCLINE
     Indication: HIDRADENITIS
     Route: 065
  21. CLINDA-T [Suspect]
     Active Substance: CLINDAMYCIN PHOSPHATE
     Route: 065
  22. ACZONE [Suspect]
     Active Substance: DAPSONE
     Indication: HIDRADENITIS
     Route: 061
  23. ACZONE [Suspect]
     Active Substance: DAPSONE
     Route: 065
  24. ISOTRETINOIN. [Suspect]
     Active Substance: ISOTRETINOIN
     Indication: HIDRADENITIS
     Route: 065

REACTIONS (12)
  - Drug intolerance [Unknown]
  - Skin lesion [Unknown]
  - Skin odour abnormal [Unknown]
  - Condition aggravated [Unknown]
  - Drug ineffective [Unknown]
  - Treatment failure [Unknown]
  - Scar [Unknown]
  - Wound secretion [Unknown]
  - Mobility decreased [Unknown]
  - Suicidal ideation [Unknown]
  - Hidradenitis [Unknown]
  - Pain [Unknown]
